FAERS Safety Report 7630341-6 (Version None)
Quarter: 2011Q3

REPORT INFORMATION
  Report Type: 
  Country: None (occurrence: None)
  Receive Date: 20110722
  Receipt Date: 20110711
  Transmission Date: 20111222
  Serious: Yes (Hospitalization)
  Sender: FDA-Public Use
  Company Number: US-ELI_LILLY_AND_COMPANY-US201107003213

PATIENT
  Sex: Female
  Weight: 66.213 kg

DRUGS (21)
  1. RAMUCIRUMAB (1121B) (LY3009806) [Suspect]
     Indication: NON-SMALL CELL LUNG CANCER
     Dosage: 10 MG/KG, UNK
     Route: 042
     Dates: start: 20110630
  2. VITAMIN B-12 [Concomitant]
     Indication: PREMEDICATION
     Dosage: UNK
     Dates: start: 20110624
  3. IRON SULFATETHIAMIN COMPOUND TAB [Concomitant]
     Dosage: 1 DF, 3/W
     Route: 048
  4. LOVASTATIN [Concomitant]
     Dosage: 40 MG, UNK
     Route: 048
  5. DIGOXIN [Concomitant]
     Dosage: 0.125 MG, QD
     Route: 048
  6. ALLOPURINOL [Concomitant]
     Dosage: 300 MG, UNK
     Route: 048
  7. ETHACRYNIC ACID [Concomitant]
     Dosage: 25 MG, UNK
     Route: 048
  8. DIGOXIN [Concomitant]
     Dosage: 0.062 MG, UNK
  9. TRAZODONE HCL [Concomitant]
     Dosage: 50 MG, QD
     Route: 048
  10. VITAMIN D [Concomitant]
     Dosage: 1 DF, QD
     Route: 048
  11. FOLIC ACID [Concomitant]
     Dosage: 1 MG, QD
  12. CLONAZEPAM [Concomitant]
     Dosage: 1.5 MG, EACH EVENING
     Route: 048
  13. PROCHLORPERAZINE [Concomitant]
     Indication: PROPHYLAXIS OF NAUSEA AND VOMITING
     Dosage: 10 MG, UNK
     Route: 048
  14. FOLIC ACID [Concomitant]
     Indication: PREMEDICATION
     Dosage: UNK
     Dates: start: 20110623
  15. CARVEDILOL [Concomitant]
     Dosage: 12.5 MG, UNK
     Route: 048
  16. DOXEPIN [Concomitant]
     Dosage: 100 MG, EACH EVENING
     Route: 048
  17. MULTI-VITAMIN [Concomitant]
     Dosage: 1 DF, QD
     Route: 048
     Dates: start: 20110210
  18. PEMETREXED [Suspect]
     Indication: NON-SMALL CELL LUNG CANCER
     Dosage: 500 MG/M2, UNK
     Route: 042
     Dates: start: 20110630
  19. ALLOPURINOL [Concomitant]
     Dosage: 100 MG, QD
     Route: 048
  20. VITAMIN B [Concomitant]
     Dosage: 1 DF, QD
     Route: 048
  21. CARBOPLATIN [Suspect]
     Indication: NON-SMALL CELL LUNG CANCER
     Dosage: UNK
     Dates: start: 20110630

REACTIONS (2)
  - INTESTINAL ISCHAEMIA [None]
  - ATRIAL FIBRILLATION [None]
